FAERS Safety Report 22285407 (Version 1)
Quarter: 2023Q2

REPORT INFORMATION
  Report Type: Report from Study
  Country: KR (occurrence: KR)
  Receive Date: 20230504
  Receipt Date: 20230504
  Transmission Date: 20230721
  Serious: Yes (Hospitalization)
  Sender: FDA-Public Use
  Company Number: KR-SA-SAC20230425000411

PATIENT
  Age: 54 Year
  Sex: Male

DRUGS (4)
  1. CEMIPLIMAB [Suspect]
     Active Substance: CEMIPLIMAB
     Indication: Plasma cell myeloma refractory
     Dosage: 25 MG, QOW
     Route: 042
     Dates: start: 20230228, end: 20230228
  2. CEMIPLIMAB [Suspect]
     Active Substance: CEMIPLIMAB
     Dosage: 25 MG, QOW
     Route: 042
     Dates: start: 20230413, end: 20230413
  3. ISATUXIMAB [Suspect]
     Active Substance: ISATUXIMAB
     Indication: Neoplasm malignant
     Dosage: 693 MG, QOW
     Route: 042
     Dates: start: 20230228, end: 20230228
  4. ISATUXIMAB [Suspect]
     Active Substance: ISATUXIMAB
     Dosage: 693 MG, QOW
     Route: 042
     Dates: start: 20230413, end: 20230413

REACTIONS (1)
  - Pneumonia [Not Recovered/Not Resolved]

NARRATIVE: CASE EVENT DATE: 20230420
